FAERS Safety Report 4617214-8 (Version None)
Quarter: 2005Q1

REPORT INFORMATION
  Report Type: 
  Country: None (occurrence: None)
  Receive Date: 20050323
  Receipt Date: 20050311
  Transmission Date: 20050727
  Serious: Yes (Hospitalization)
  Sender: FDA-Public Use
  Company Number: PT-SANOFI-SYNTHELABO-F01200500397

PATIENT
  Sex: Female

DRUGS (7)
  1. OXALIPLATIN [Suspect]
     Indication: COLORECTAL CANCER METASTATIC
     Route: 042
  2. FLUOROURACIL [Suspect]
     Route: 042
  3. LEUCOVORIN CALCIUM [Suspect]
     Route: 042
  4. BEVACIZUMAB [Suspect]
     Route: 042
     Dates: start: 20050218, end: 20050218
  5. METOCLOPRAMIDE [Concomitant]
     Dosage: UNK
     Route: 065
     Dates: start: 20050218, end: 20050226
  6. ONDANSETRON [Concomitant]
     Dosage: UNK
     Route: 065
     Dates: start: 20050218, end: 20050223
  7. DILBLOC [Concomitant]
     Dosage: UNK
     Route: 065
     Dates: start: 20041026, end: 20050226

REACTIONS (3)
  - ESCHERICHIA INFECTION [None]
  - PYREXIA [None]
  - RENAL IMPAIRMENT [None]
